FAERS Safety Report 9943757 (Version 2)
Quarter: 2014Q1

REPORT INFORMATION
  Report Type: Report from Study
  Country: US (occurrence: US)
  Receive Date: 20140303
  Receipt Date: 20140303
  Transmission Date: 20141002
  Serious: No
  Sender: FDA-Public Use
  Company Number: US-ABBVIE-13P-163-1048042-00

PATIENT
  Age: 41 Year
  Sex: Male
  Weight: 88.53 kg

DRUGS (11)
  1. HUMIRA [Suspect]
     Indication: RHEUMATOID ARTHRITIS
     Route: 058
     Dates: start: 2010, end: 201212
  2. HUMIRA [Suspect]
     Route: 058
     Dates: start: 20130120
  3. COLAZAL [Concomitant]
     Indication: PRODUCT USED FOR UNKNOWN INDICATION
  4. PREDNISONE [Concomitant]
     Indication: PRODUCT USED FOR UNKNOWN INDICATION
  5. LOMOTIL [Concomitant]
     Indication: PRODUCT USED FOR UNKNOWN INDICATION
  6. PRILOSEC [Concomitant]
     Indication: DYSPEPSIA
  7. ATENOLOL [Concomitant]
     Indication: HYPERTENSION
  8. PRISTIQ [Concomitant]
     Indication: DEPRESSION
  9. LORTAB [Concomitant]
     Indication: ARTHRALGIA
  10. XANAX [Concomitant]
     Indication: POST-TRAUMATIC STRESS DISORDER
  11. KLONOPIN [Concomitant]
     Indication: POST-TRAUMATIC STRESS DISORDER

REACTIONS (2)
  - Pneumonia [Recovered/Resolved]
  - Influenza [Recovered/Resolved]
